FAERS Safety Report 11190025 (Version 2)
Quarter: 2015Q3

REPORT INFORMATION
  Report Type: Report from Study
  Country: US (occurrence: US)
  Receive Date: 20150615
  Receipt Date: 20150721
  Transmission Date: 20151125
  Serious: Yes (Hospitalization, Other)
  Sender: FDA-Public Use
  Company Number: US-RECKITT BENCKISER PHARMACEUTICAL, INC-RB-080209-2015

PATIENT
  Age: 33 Year
  Sex: Female

DRUGS (2)
  1. SUBOXONE [Suspect]
     Active Substance: BUPRENORPHINE HYDROCHLORIDE\NALOXONE HYDROCHLORIDE
     Indication: PAIN
     Dosage: 8 MG, TID FOR ABOUT 8 MONTH
     Route: 060
     Dates: start: 2008, end: 20150529
  2. NICOTINE. [Concomitant]
     Active Substance: NICOTINE
     Indication: NICOTINE DEPENDENCE
     Dosage: 1 CIGARETTE, UNKNOWN
     Route: 055

REACTIONS (5)
  - Gallbladder disorder [Recovered/Resolved]
  - Product use issue [Recovered/Resolved]
  - Gastritis [Recovered/Resolved]
  - Hypoaesthesia [Not Recovered/Not Resolved]
  - Off label use [Recovered/Resolved]

NARRATIVE: CASE EVENT DATE: 2012
